FAERS Safety Report 25167105 (Version 1)
Quarter: 2025Q2

REPORT INFORMATION
  Report Type: Spontaneous
  Country: US (occurrence: None)
  Receive Date: 20250404
  Receipt Date: 20250404
  Transmission Date: 20250716
  Serious: Yes (Hospitalization)
  Sender: FDA-CTU
  Company Number: None

PATIENT
  Age: 66 Year
  Sex: Female

DRUGS (10)
  1. MEKINIST [Suspect]
     Active Substance: TRAMETINIB DIMETHYL SULFOXIDE
     Indication: Ovarian cancer
     Dosage: FREQUENCY : DAILY;?
     Route: 048
     Dates: start: 20250210
  2. Imodium A-D 2mg Tablets [Concomitant]
  3. Cosopt Ocumeter Plus Oph Soln. [Concomitant]
  4. ELIQUIS [Concomitant]
     Active Substance: APIXABAN
  5. FOSAMAX [Concomitant]
     Active Substance: ALENDRONATE SODIUM
  6. OXYCODONE [Concomitant]
     Active Substance: OXYCODONE
  7. Prochlorperazine 10mg [Concomitant]
  8. ROSUVASTATIN [Concomitant]
     Active Substance: ROSUVASTATIN
  9. Vitamin D2 2000 units [Concomitant]
  10. XYZAL [Concomitant]
     Active Substance: LEVOCETIRIZINE DIHYDROCHLORIDE

REACTIONS (1)
  - Diarrhoea haemorrhagic [None]

NARRATIVE: CASE EVENT DATE: 20250311
